FAERS Safety Report 8075352-4 (Version None)
Quarter: 2012Q1

REPORT INFORMATION
  Report Type: 
  Country: None (occurrence: None)
  Receive Date: 20120127
  Receipt Date: 20120119
  Transmission Date: 20120608
  Serious: Yes (Other)
  Sender: FDA-Public Use
  Company Number: US-BAYER-2011-042785

PATIENT
  Age: 25 Year
  Sex: Female
  Weight: 95 kg

DRUGS (2)
  1. IBUPROFEN [Concomitant]
     Indication: VEIN PAIN
     Dosage: UNK
     Route: 048
     Dates: start: 20040308
  2. YASMIN [Suspect]
     Indication: CONTRACEPTION
     Dosage: UNK
     Dates: start: 20040115, end: 20040301

REACTIONS (8)
  - DEEP VEIN THROMBOSIS [None]
  - THROMBOSIS [None]
  - ANXIETY [None]
  - GENERAL PHYSICAL HEALTH DETERIORATION [None]
  - PAIN IN EXTREMITY [None]
  - EMOTIONAL DISTRESS [None]
  - INJURY [None]
  - PAIN [None]
